FAERS Safety Report 5679500-2 (Version None)
Quarter: 2008Q1

REPORT INFORMATION
  Report Type: 
  Country: None (occurrence: None)
  Receive Date: 20080325
  Receipt Date: 20080316
  Transmission Date: 20080703
  Serious: Yes (Hospitalization)
  Sender: FDA-Public Use
  Company Number: US-ALLERGAN-0803140US

PATIENT
  Age: 74 Year
  Sex: Female

DRUGS (5)
  1. COMBIGAN [Suspect]
     Indication: GLAUCOMA
     Dosage: UNK, QD
     Route: 047
     Dates: start: 20080201
  2. COMBIGAN [Suspect]
     Dosage: UNK, BID
     Route: 047
     Dates: end: 20080315
  3. AVAPRO [Concomitant]
  4. COSOPT [Concomitant]
  5. XALATAN [Concomitant]

REACTIONS (3)
  - DIZZINESS [None]
  - HYPERTENSION [None]
  - INSOMNIA [None]
